FAERS Safety Report 15360588 (Version 2)
Quarter: 2018Q3

REPORT INFORMATION
  Report Type: Report from Study
  Country: ZA (occurrence: ZA)
  Receive Date: 20180907
  Receipt Date: 20180910
  Transmission Date: 20181010
  Serious: Yes (Congenital Anomaly, Other)
  Sender: FDA-Public Use
  Company Number: ZA-HETERO CORPORATE-HET2018ZA00872

PATIENT
  Sex: Female
  Weight: 3.2 kg

DRUGS (2)
  1. TIVICAY [Suspect]
     Active Substance: DOLUTEGRAVIR SODIUM
     Indication: HIV INFECTION
     Dosage: UNK
     Route: 064
     Dates: start: 20180522, end: 20180529
  2. NEVIRAPINE. [Suspect]
     Active Substance: NEVIRAPINE
     Indication: HIV INFECTION
     Dosage: 1.5 ML
     Route: 064
     Dates: start: 20180529, end: 20180529

REACTIONS (3)
  - Foetal exposure during pregnancy [Unknown]
  - Umbilical hernia [Unknown]
  - Premature baby [Unknown]
